FAERS Safety Report 8810165 (Version 2)
Quarter: 2012Q4

REPORT INFORMATION
  Report Type: Report from Study
  Country: JP (occurrence: JP)
  Receive Date: 20120926
  Receipt Date: 20121023
  Transmission Date: 20130627
  Serious: Yes (Hospitalization)
  Sender: FDA-Public Use
  Company Number: JP-ROCHE-1134307

PATIENT
  Age: 77 Year
  Sex: Male

DRUGS (23)
  1. METHOXY POLYETHYLENE GLYCOL-EPOETIN BETA [Suspect]
     Indication: NEPHROGENIC ANAEMIA
     Route: 042
     Dates: start: 20110810, end: 20110824
  2. METHOXY POLYETHYLENE GLYCOL-EPOETIN BETA [Suspect]
     Indication: NEPHROGENIC ANAEMIA
     Route: 042
     Dates: start: 20110914, end: 20111012
  3. METHOXY POLYETHYLENE GLYCOL-EPOETIN BETA [Suspect]
     Indication: NEPHROGENIC ANAEMIA
     Route: 042
     Dates: start: 20111116, end: 20111116
  4. METHOXY POLYETHYLENE GLYCOL-EPOETIN BETA [Suspect]
     Indication: NEPHROGENIC ANAEMIA
     Route: 042
     Dates: start: 20111214, end: 20111214
  5. METHOXY POLYETHYLENE GLYCOL-EPOETIN BETA [Suspect]
     Indication: NEPHROGENIC ANAEMIA
     Route: 042
     Dates: start: 20120118, end: 20120215
  6. METHOXY POLYETHYLENE GLYCOL-EPOETIN BETA [Suspect]
     Indication: NEPHROGENIC ANAEMIA
     Route: 042
     Dates: start: 20120314, end: 20120314
  7. METHOXY POLYETHYLENE GLYCOL-EPOETIN BETA [Suspect]
     Indication: NEPHROGENIC ANAEMIA
     Route: 042
     Dates: start: 20120411, end: 20120411
  8. METHOXY POLYETHYLENE GLYCOL-EPOETIN BETA [Suspect]
     Indication: NEPHROGENIC ANAEMIA
     Route: 042
     Dates: start: 20120516, end: 20120516
  9. METHOXY POLYETHYLENE GLYCOL-EPOETIN BETA [Suspect]
     Indication: NEPHROGENIC ANAEMIA
     Route: 042
     Dates: start: 20120613, end: 20120613
  10. MUCOSTA [Concomitant]
     Route: 048
  11. GASMOTIN [Concomitant]
     Route: 048
  12. BIO-THREE [Concomitant]
     Route: 048
  13. SARPOGRELATE HYDROCHLORIDE [Concomitant]
     Route: 048
  14. OMEPRAL [Concomitant]
     Route: 048
  15. ALFAROL [Concomitant]
     Route: 048
  16. MICARDIS [Concomitant]
     Route: 048
  17. AMLODIPINE [Concomitant]
     Indication: HYPERTENSION
     Route: 048
  18. AMLODIPINE [Concomitant]
     Indication: HYPERTENSION
     Route: 048
     Dates: start: 20111014
  19. PHOSBLOCK [Concomitant]
     Route: 048
  20. EURODIN [Concomitant]
     Route: 048
  21. PRECIPITATED CALCIUM CARBONATE [Concomitant]
     Route: 048
  22. TANATRIL [Concomitant]
     Route: 048
  23. HALFDIGOXIN KY [Concomitant]
     Route: 048
     Dates: start: 20110812, end: 20111111

REACTIONS (4)
  - Peritonitis [Not Recovered/Not Resolved]
  - Duodenal ulcer perforation [Not Recovered/Not Resolved]
  - Blood pressure increased [Recovered/Resolved]
  - Gingivitis [Recovered/Resolved]
